FAERS Safety Report 7508793-1 (Version None)
Quarter: 2011Q2

REPORT INFORMATION
  Report Type: 
  Country: None (occurrence: None)
  Receive Date: 20110527
  Receipt Date: 20110303
  Transmission Date: 20111010
  Serious: No
  Sender: FDA-Public Use
  Company Number: A0916455A

PATIENT
  Age: 64 Year
  Sex: Female

DRUGS (5)
  1. BUSPIRONE HCL [Concomitant]
  2. VENTOLIN [Suspect]
     Indication: CHRONIC OBSTRUCTIVE PULMONARY DISEASE
     Dosage: 2PUFF AS REQUIRED
     Route: 055
     Dates: start: 20100801
  3. FOSAMAX [Concomitant]
  4. MUCINEX [Concomitant]
  5. VITAMINS [Concomitant]

REACTIONS (2)
  - OVERDOSE [None]
  - COUGH [None]
